FAERS Safety Report 9001638 (Version 1)
Quarter: 2013Q1

REPORT INFORMATION
  Report Type: Spontaneous
  Country: US (occurrence: US)
  Receive Date: 20130107
  Receipt Date: 20130107
  Transmission Date: 20140127
  Serious: No
  Sender: FDA-Public Use
  Company Number: US-PFIZER INC-2013003509

PATIENT
  Age: 64 Year
  Sex: Female
  Weight: 130 kg

DRUGS (3)
  1. TOVIAZ [Suspect]
     Indication: MULTIPLE SCLEROSIS
     Dosage: 8 MG, DAILY
     Dates: start: 2012
  2. LOSARTAN [Concomitant]
     Indication: BLOOD PRESSURE ABNORMAL
     Dosage: 50 MG, DAILY
  3. CETIRIZINE HYDROCHLORIDE [Concomitant]
     Indication: UPPER-AIRWAY COUGH SYNDROME
     Dosage: 10 MG, DAILY

REACTIONS (1)
  - Constipation [Not Recovered/Not Resolved]
